FAERS Safety Report 16261758 (Version 2)
Quarter: 2019Q2

REPORT INFORMATION
  Report Type: Spontaneous
  Country: US (occurrence: US)
  Receive Date: 20190501
  Receipt Date: 20190501
  Transmission Date: 20190711
  Serious: Yes (Other)
  Sender: FDA-Public Use
  Company Number: PHEH2019US018059

PATIENT
  Sex: Female

DRUGS (14)
  1. IRINOTECAN [Suspect]
     Active Substance: IRINOTECAN
     Dosage: 150 MG, Q2W
     Route: 065
     Dates: start: 201902
  2. IRINOTECAN [Suspect]
     Active Substance: IRINOTECAN
     Indication: PANCREATIC CARCINOMA
     Dosage: 150 MG, Q2W
     Route: 065
     Dates: start: 201902
  3. LEUCOVORIN CALCIUM. [Suspect]
     Active Substance: LEUCOVORIN CALCIUM
     Dosage: 500 MG, Q2W (200 MG VIAL)
     Route: 042
  4. LEUCOVORIN CALCIUM. [Suspect]
     Active Substance: LEUCOVORIN CALCIUM
     Dosage: 500 MG, Q2W (100 MG VIAL)
     Route: 042
     Dates: start: 201902
  5. CALCIUM GLUCONATE. [Suspect]
     Active Substance: CALCIUM GLUCONATE
     Indication: PANCREATIC CARCINOMA
     Dosage: INFUSE 4.65MEQ, Q2W
     Route: 042
  6. ABRAXANE [Suspect]
     Active Substance: PACLITAXEL
     Indication: PANCREATIC CARCINOMA
     Dosage: 90 MG, 2 WEEKS ON 1 WEEK OFF ON DAYS 1 AND 8
     Route: 042
     Dates: start: 201804
  7. DIPHENHYDRAMINE HYDROCHLORIDE. [Suspect]
     Active Substance: DIPHENHYDRAMINE HYDROCHLORIDE
     Indication: PANCREATIC CARCINOMA
     Dosage: 25 MG, Q2W
     Route: 042
     Dates: start: 201902
  8. MAGNESIUM SULFATE. [Suspect]
     Active Substance: MAGNESIUM SULFATE
     Indication: PANCREATIC CARCINOMA
     Dosage: 1000 MG, Q2W
     Route: 042
     Dates: start: 201902
  9. DEXAMETHASONE SODIUM PHOSPHATE. [Suspect]
     Active Substance: DEXAMETHASONE SODIUM PHOSPHATE
     Indication: PANCREATIC CARCINOMA
     Dosage: 10 MG, Q2W
     Route: 065
     Dates: start: 201902
  10. FLOUROURACIL [Suspect]
     Active Substance: FLUOROURACIL
     Dosage: 3000 MG, Q2W
     Route: 042
     Dates: start: 201902
  11. OXALIPLATIN. [Suspect]
     Active Substance: OXALIPLATIN
     Indication: PANCREATIC CARCINOMA
     Dosage: 100 MG, Q2W
     Route: 042
     Dates: start: 201902
  12. ONDANSETRON [Suspect]
     Active Substance: ONDANSETRON
     Indication: PANCREATIC CARCINOMA
     Dosage: 16 MG, Q2W
     Route: 042
     Dates: start: 201902
  13. FLOUROURACIL [Suspect]
     Active Substance: FLUOROURACIL
     Indication: PANCREATIC CARCINOMA
     Dosage: 3000 MG, Q2W
     Route: 042
     Dates: start: 201902
  14. LEUCOVORIN CALCIUM. [Suspect]
     Active Substance: LEUCOVORIN CALCIUM
     Indication: PANCREATIC CARCINOMA
     Dosage: 500 MG, Q2W (200 MG VIAL)
     Route: 042
     Dates: start: 201902

REACTIONS (3)
  - Therapeutic product effect incomplete [Unknown]
  - Malaise [Unknown]
  - Toxicity to various agents [Unknown]
